FAERS Safety Report 6169566-8 (Version None)
Quarter: 2009Q2

REPORT INFORMATION
  Report Type: 
  Country: None (occurrence: None)
  Receive Date: 20090428
  Receipt Date: 20090312
  Transmission Date: 20091009
  Serious: No
  Sender: FDA-Public Use
  Company Number: US-BAYER-200916016NA

PATIENT
  Age: 56 Year
  Sex: Male

DRUGS (4)
  1. LEVITRA [Suspect]
     Indication: DRUG USE FOR UNKNOWN INDICATION
     Dosage: UNIT DOSE: 10 MG
     Dates: start: 20080530
  2. DIAZIDE [Concomitant]
  3. COUMADIN [Concomitant]
  4. BENZODIAZEPINE [Concomitant]

REACTIONS (1)
  - ADVERSE EVENT [None]
